FAERS Safety Report 10973041 (Version 2)
Quarter: 2015Q2

REPORT INFORMATION
  Report Type: Spontaneous
  Country: US (occurrence: US)
  Receive Date: 20150401
  Receipt Date: 20150525
  Transmission Date: 20150821
  Serious: Yes (Other)
  Sender: FDA-Public Use
  Company Number: US-JNJFOC-20130211940

PATIENT
  Age: 46 Year
  Sex: Female
  Weight: 52.16 kg

DRUGS (7)
  1. RISPERDAL [Suspect]
     Active Substance: RISPERIDONE
     Indication: SCHIZOPHRENIA
     Dosage: ONCE AT BED TIME
     Route: 048
     Dates: end: 201301
  2. RISPERDAL [Suspect]
     Active Substance: RISPERIDONE
     Indication: SCHIZOPHRENIA
     Dosage: 1 AT BED TIME
     Route: 048
     Dates: start: 201301
  3. KLONOPIN [Suspect]
     Active Substance: CLONAZEPAM
     Indication: ANXIETY
     Dosage: MORNING
     Route: 048
     Dates: end: 201212
  4. KLONOPIN [Suspect]
     Active Substance: CLONAZEPAM
     Indication: SLEEP DISORDER THERAPY
     Dosage: MORNING
     Route: 048
     Dates: end: 201212
  5. KLONOPIN [Suspect]
     Active Substance: CLONAZEPAM
     Indication: ANXIETY
     Dosage: EVENING
     Route: 048
     Dates: start: 201212
  6. KLONOPIN [Suspect]
     Active Substance: CLONAZEPAM
     Indication: SLEEP DISORDER THERAPY
     Dosage: EVENING
     Route: 048
     Dates: start: 201212
  7. PAXIL [Concomitant]
     Active Substance: PAROXETINE HYDROCHLORIDE
     Indication: SCHIZOPHRENIA
     Dosage: AT MORNING
     Route: 048

REACTIONS (4)
  - Somnolence [Unknown]
  - Treatment noncompliance [Not Recovered/Not Resolved]
  - Trichotillomania [Unknown]
  - Insomnia [Not Recovered/Not Resolved]

NARRATIVE: CASE EVENT DATE: 201212
